FAERS Safety Report 11842802 (Version 1)
Quarter: 2015Q4

REPORT INFORMATION
  Report Type: Spontaneous
  Country: BR (occurrence: BR)
  Receive Date: 20151216
  Receipt Date: 20151216
  Transmission Date: 20160305
  Serious: Yes (Other)
  Sender: FDA-Public Use
  Company Number: BR-B.I. PHARMACEUTICALS,INC./RIDGEFIELD-2015-BI-70074BR

PATIENT
  Age: 69 Year
  Sex: Male
  Weight: 78 kg

DRUGS (7)
  1. DUTASTERIDA [Concomitant]
     Indication: PROSTATIC DISORDER
     Dosage: 0.4 MG
     Route: 048
     Dates: start: 2010
  2. OMEPRAZOL [Concomitant]
     Active Substance: OMEPRAZOLE
     Indication: GASTRITIS
     Dosage: 20 MG
     Route: 048
     Dates: start: 2010
  3. CLOPIDOGREL [Concomitant]
     Active Substance: CLOPIDOGREL BISULFATE
     Indication: ARRHYTHMIA
     Dosage: 75 MG
     Route: 048
     Dates: start: 2010
  4. CARVEDILOL. [Concomitant]
     Active Substance: CARVEDILOL
     Indication: ARRHYTHMIA
     Dosage: 6.5 MG
     Route: 048
     Dates: start: 2010
  5. DIGOXINA [Concomitant]
     Active Substance: DIGOXIN
     Indication: ARRHYTHMIA
     Dosage: 0.25 NR
     Route: 048
     Dates: start: 2010
  6. SPIRIVA RESPIMAT [Suspect]
     Active Substance: TIOTROPIUM BROMIDE
     Indication: LUNG DISORDER
     Dosage: 2.5 MG
     Route: 055
     Dates: start: 20151027
  7. DOXAZOSIN [Concomitant]
     Active Substance: DOXAZOSIN\DOXAZOSIN MESYLATE
     Indication: PROSTATIC DISORDER
     Dosage: 8 MG
     Route: 048
     Dates: start: 2010

REACTIONS (3)
  - Drug ineffective [Recovered/Resolved]
  - Pulmonary hypertension [Not Recovered/Not Resolved]
  - Dry mouth [Recovered/Resolved]

NARRATIVE: CASE EVENT DATE: 20151027
